FAERS Safety Report 19870377 (Version 5)
Quarter: 2022Q1

REPORT INFORMATION
  Report Type: Report from Study
  Country: CN (occurrence: CN)
  Receive Date: 20210922
  Receipt Date: 20220112
  Transmission Date: 20220423
  Serious: Yes (Death)
  Sender: FDA-Public Use
  Company Number: CN-PFIZER INC-202101226283

PATIENT
  Age: 53 Year
  Sex: Male
  Weight: 63 kg

DRUGS (30)
  1. PACLITAXEL [Suspect]
     Active Substance: PACLITAXEL
     Indication: Squamous cell carcinoma of lung
     Dosage: 175 MG/M2 (Q3WEEK)
     Route: 041
     Dates: start: 20210701
  2. PACLITAXEL [Suspect]
     Active Substance: PACLITAXEL
     Dosage: 175 MG/M2 (Q3WEEK)
     Route: 041
  3. PACLITAXEL [Suspect]
     Active Substance: PACLITAXEL
     Dosage: 175 MG/M2 (Q3WEEK)
     Route: 041
     Dates: end: 20210817
  4. CARBOPLATIN [Suspect]
     Active Substance: CARBOPLATIN
     Indication: Squamous cell carcinoma of lung
     Dosage: AUC5, EVERY 3 WEEKS
     Route: 041
     Dates: start: 20210630
  5. CARBOPLATIN [Suspect]
     Active Substance: CARBOPLATIN
     Dosage: AUC5, EVERY 3 WEEKS
     Route: 041
     Dates: end: 20210817
  6. INVESTIGATIONAL PRODUCT [Suspect]
     Active Substance: INVESTIGATIONAL PRODUCT
     Indication: Squamous cell carcinoma of lung
     Dosage: UNK
     Dates: start: 20210630, end: 20210903
  7. AMLODIPINE BESYLATE [Concomitant]
     Active Substance: AMLODIPINE BESYLATE
     Dosage: 2.5 MG, 1X/DAY
     Route: 048
     Dates: start: 20210530
  8. ACARBOSE [Concomitant]
     Active Substance: ACARBOSE
     Indication: Type 2 diabetes mellitus
     Dosage: 0.1 G, 3X/DAY
     Route: 048
     Dates: start: 20210531
  9. EPALRESTAT [Concomitant]
     Active Substance: EPALRESTAT
     Indication: Type 2 diabetes mellitus
     Dosage: 50 MG, 2X/DAY
     Route: 048
     Dates: start: 20210607
  10. SITAGLIPTIN [Concomitant]
     Active Substance: SITAGLIPTIN
     Indication: Type 2 diabetes mellitus
     Dosage: 100 MG, 1X/DAY
     Route: 048
     Dates: start: 20210607
  11. DIPHENHYDRAMINE HYDROCHLORIDE [Concomitant]
     Active Substance: DIPHENHYDRAMINE HYDROCHLORIDE
     Indication: Allergy prophylaxis
     Dosage: 40 MG, SINGLE DOSE
     Route: 030
     Dates: start: 20210903, end: 20210903
  12. CIMETIDINE [Concomitant]
     Active Substance: CIMETIDINE
     Indication: Prophylaxis
     Dosage: 4 ML, SINGLE DOSE
     Route: 041
     Dates: start: 20210903, end: 20210903
  13. ACETAMINOPHEN [Concomitant]
     Active Substance: ACETAMINOPHEN
     Indication: Allergy prophylaxis
     Dosage: 0.5 G, SINGLE DOSE
     Route: 048
     Dates: start: 20210903, end: 20210903
  14. PALONOSETRON HYDROCHLORIDE [Concomitant]
     Active Substance: PALONOSETRON HYDROCHLORIDE
     Indication: Prophylaxis of nausea and vomiting
     Dosage: 5 ML, 1X/DAY
     Route: 048
     Dates: start: 20210701, end: 20210701
  15. APREPITANT [Concomitant]
     Active Substance: APREPITANT
     Indication: Prophylaxis of nausea and vomiting
     Dosage: 80 MG, SINGLE DOSE
     Route: 048
     Dates: start: 20210701, end: 20210701
  16. METOPROLOL TARTRATE [Concomitant]
     Active Substance: METOPROLOL TARTRATE
     Indication: Infusion related reaction
     Dosage: 25 MG, SINGLE DOSE
     Route: 048
     Dates: start: 20210723, end: 20210723
  17. GRANULOCYTE COLONY-STIMULATING FACTOR NOS [Concomitant]
     Active Substance: GRANULOCYTE COLONY-STIMULATING FACTOR NOS
     Indication: Neutropenia
     Dosage: 200 UG, SINGLE DOSE
     Dates: start: 20210826, end: 20210827
  18. GRANULOCYTE COLONY-STIMULATING FACTOR NOS [Concomitant]
     Active Substance: GRANULOCYTE COLONY-STIMULATING FACTOR NOS
     Indication: Leukaemia
  19. OPRELVEKIN [Concomitant]
     Active Substance: OPRELVEKIN
     Indication: Platelet count decreased
     Dosage: 3 MG, 1X/DAY
     Route: 058
     Dates: start: 20210904, end: 20210908
  20. LEUCOGEN [Concomitant]
     Active Substance: LEUCOGEN
     Indication: White blood cell count decreased
     Dosage: 20 MG, 3X/DAY
     Route: 048
     Dates: start: 20210711, end: 20210727
  21. LEUCOGEN [Concomitant]
     Active Substance: LEUCOGEN
     Dosage: 20 MG, 3X/DAY
     Route: 048
     Dates: start: 20210902, end: 20210912
  22. POTASSIUM CHLORIDE [Concomitant]
     Active Substance: POTASSIUM CHLORIDE
     Indication: Supplementation therapy
     Dosage: 10 ML, 1X/DAY
     Route: 041
     Dates: start: 20210708, end: 20210709
  23. POTASSIUM CHLORIDE [Concomitant]
     Active Substance: POTASSIUM CHLORIDE
     Dosage: 7 ML, 1X/DAY
     Route: 041
     Dates: start: 20210708, end: 20210709
  24. VITAMIN B6 [Concomitant]
     Active Substance: PYRIDOXINE HYDROCHLORIDE
     Indication: Vitamin supplementation
     Dosage: 0.2 G, 1X/DAY
     Route: 041
     Dates: start: 20210708, end: 20210709
  25. VITAMIN C [Concomitant]
     Active Substance: ASCORBIC ACID
     Indication: Vitamin supplementation
     Dosage: 2.0 G, 1X/DAY
     Route: 041
     Dates: start: 20210708, end: 20210709
  26. INOSINE [Concomitant]
     Active Substance: INOSINE
     Indication: Platelet count decreased
     Dosage: 0.2 G, 1X/DAY
     Route: 041
     Dates: start: 20210708, end: 20210709
  27. MONTMORILLONITE [Concomitant]
     Active Substance: MONTMORILLONITE
     Indication: Diarrhoea
     Dosage: 3 MG, 1X/DAY
     Route: 048
     Dates: start: 20210706, end: 20210708
  28. MONTMORILLONITE [Concomitant]
     Active Substance: MONTMORILLONITE
     Dosage: 3 MG, 1X/DAY
     Route: 048
     Dates: start: 20210709, end: 20210709
  29. THYMOSIN [Concomitant]
     Active Substance: THYMOSIN
     Indication: Neoplasm
     Dosage: 30 MG, 2X/DAY (ENTERIC COATED)
     Route: 048
     Dates: start: 20210909, end: 20210912
  30. THYMOSIN [Concomitant]
     Active Substance: THYMOSIN
     Indication: Adjuvant therapy

REACTIONS (1)
  - Death [Fatal]

NARRATIVE: CASE EVENT DATE: 20210901
